FAERS Safety Report 13886168 (Version 1)
Quarter: 2017Q3

REPORT INFORMATION
  Report Type: Spontaneous
  Country: None (occurrence: US)
  Receive Date: 20170821
  Receipt Date: 20170821
  Transmission Date: 20171127
  Serious: Yes (Other)
  Sender: FDA-Public Use
  Company Number: US-LABORATOIRE HRA PHARMA-2024848

PATIENT
  Age: 24 Year
  Sex: Female
  Weight: 108.8 kg

DRUGS (1)
  1. ELLA [Suspect]
     Active Substance: ULIPRISTAL ACETATE
     Indication: POST COITAL CONTRACEPTION
     Route: 048
     Dates: start: 20170725, end: 20170725

REACTIONS (5)
  - Leukocyturia [Unknown]
  - Back pain [Unknown]
  - Blood urine present [Unknown]
  - Abdominal pain [Unknown]
  - Urinary tract infection staphylococcal [Unknown]

NARRATIVE: CASE EVENT DATE: 20170726
